FAERS Safety Report 26081324 (Version 1)
Quarter: 2025Q4

REPORT INFORMATION
  Report Type: Spontaneous
  Country: US (occurrence: US)
  Receive Date: 20251124
  Receipt Date: 20251124
  Transmission Date: 20260117
  Serious: No
  Sender: ALKEM
  Company Number: US-ALKEM LABORATORIES LIMITED-US-ALKEM-2025-04156

PATIENT
  Sex: Female
  Weight: 82.993 kg

DRUGS (8)
  1. RASAGILINE MESYLATE [Suspect]
     Active Substance: RASAGILINE MESYLATE
     Indication: Parkinson^s disease
     Dosage: 1 MILLIGRAM
     Route: 048
     Dates: start: 202204, end: 20240916
  2. CARBIDOPA\LEVODOPA [Concomitant]
     Active Substance: CARBIDOPA\LEVODOPA
     Indication: Product used for unknown indication
     Dosage: 1.5 TABLETS, QID
     Route: 065
  3. MYRBETRIQ [Concomitant]
     Active Substance: MIRABEGRON
     Indication: Product used for unknown indication
     Dosage: UNK UNK, QD
     Route: 065
     Dates: end: 202504
  4. ESTRADIOL [Concomitant]
     Active Substance: ESTRADIOL
     Indication: Product used for unknown indication
     Dosage: 5 MG FOR 3 MONTHS
     Route: 065
     Dates: start: 1996
  5. ESTRADIOL [Concomitant]
     Active Substance: ESTRADIOL
     Dosage: 1/2 ESTRADIOL
     Route: 065
     Dates: start: 20241016, end: 20250117
  6. ESTRADIOL [Concomitant]
     Active Substance: ESTRADIOL
     Dosage: 1 MILLIGRAM, QD
     Route: 065
     Dates: start: 20250217
  7. HYDROCHLOROTHIAZIDE [Concomitant]
     Active Substance: HYDROCHLOROTHIAZIDE
     Indication: Joint swelling
     Dosage: UNK
     Route: 065
  8. PROGESTERONE [Concomitant]
     Active Substance: PROGESTERONE
     Indication: Product used for unknown indication
     Dosage: 100 MILLIGRAM, QD
     Route: 065

REACTIONS (3)
  - Crying [Recovered/Resolved]
  - Dysarthria [Recovered/Resolved]
  - Dry mouth [Recovered/Resolved]
